FAERS Safety Report 8770085 (Version 3)
Quarter: 2013Q2

REPORT INFORMATION
  Report Type: Report from Study
  Country: CA (occurrence: CA)
  Receive Date: 20120906
  Receipt Date: 20130423
  Transmission Date: 20140414
  Serious: Yes (Other)
  Sender: FDA-Public Use
  Company Number: CA-JNJFOC-20120814225

PATIENT
  Sex: Female
  Weight: 89 kg

DRUGS (6)
  1. REMICADE [Suspect]
     Indication: ANKYLOSING SPONDYLITIS
     Route: 042
     Dates: start: 20120401, end: 20120926
  2. CESAMET [Concomitant]
     Route: 065
  3. CELEBREX [Concomitant]
     Route: 048
  4. IMOVANE [Concomitant]
     Route: 065
  5. CYCLOBENZAPRINE [Concomitant]
     Route: 065
  6. TYLENOL 3 [Concomitant]
     Route: 065

REACTIONS (1)
  - Cervix carcinoma [Unknown]
